FAERS Safety Report 6265494-8 (Version None)
Quarter: 2009Q3

REPORT INFORMATION
  Report Type: 
  Country: None (occurrence: None)
  Receive Date: 20090713
  Receipt Date: 20090707
  Transmission Date: 20100115
  Serious: Yes (Life-Threatening, Hospitalization, Other)
  Sender: FDA-Public Use
  Company Number: PHEH2009US07253

PATIENT
  Sex: Female
  Weight: 51.701 kg

DRUGS (15)
  1. RECLAST [Suspect]
     Indication: OSTEOPOROSIS
     Dosage: 5 MG IV YEARLY
     Dates: start: 20080619
  2. RECLAST [Suspect]
     Dosage: 5 MG IV YEARLY
     Dates: start: 20090608
  3. TICLID [Concomitant]
  4. OCUVITE                            /01053801/ [Concomitant]
  5. COMBIVENT                               /GFR/ [Concomitant]
  6. NITROGLYCERIN [Concomitant]
  7. ATENOLOL [Concomitant]
  8. LIPITOR [Concomitant]
  9. SPIRIVA [Concomitant]
  10. NORVASC [Concomitant]
  11. FISH OIL [Concomitant]
  12. CALCIUM W/VITAMIN D NOS [Concomitant]
  13. VITAMIN C ^ELAN^ [Concomitant]
  14. MULTIVITAMIN ^LAPPE^ [Concomitant]
  15. ASA + CAFFEINE + BUTALBITAL [Concomitant]

REACTIONS (11)
  - ASTHENIA [None]
  - BLOOD ALBUMIN DECREASED [None]
  - BLOOD CALCIUM INCREASED [None]
  - BLOOD CORTISOL INCREASED [None]
  - DIZZINESS [None]
  - DYSPNOEA [None]
  - GLOBULINS INCREASED [None]
  - INFLAMMATION [None]
  - RENAL FAILURE ACUTE [None]
  - URINARY TRACT INFECTION [None]
  - WHITE BLOOD CELL COUNT INCREASED [None]
